FAERS Safety Report 6020455-9 (Version None)
Quarter: 2008Q4

REPORT INFORMATION
  Report Type: 
  Country: None (occurrence: None)
  Receive Date: 20081226
  Receipt Date: 20081216
  Transmission Date: 20090506
  Serious: Yes (Hospitalization)
  Sender: FDA-Public Use
  Company Number: FR-ROCHE-603429

PATIENT
  Sex: Male

DRUGS (7)
  1. ROVALCYTE [Suspect]
     Indication: DRUG USE FOR UNKNOWN INDICATION
     Route: 065
     Dates: end: 20080828
  2. BACTRIM DS [Suspect]
     Route: 048
     Dates: start: 20080610, end: 20080828
  3. NITAZOXANIDE [Suspect]
     Indication: DRUG USE FOR UNKNOWN INDICATION
     Route: 048
     Dates: end: 20080828
  4. REYATAZ [Concomitant]
     Indication: ANTIRETROVIRAL THERAPY
  5. TRUVADA [Concomitant]
     Indication: ANTIRETROVIRAL THERAPY
  6. NORVIR [Concomitant]
     Indication: ANTIRETROVIRAL THERAPY
  7. ISENTRESS [Concomitant]
     Indication: ANTIRETROVIRAL THERAPY

REACTIONS (3)
  - AGRANULOCYTOSIS [None]
  - OROPHARYNGEAL PAIN [None]
  - RASH MACULO-PAPULAR [None]
